FAERS Safety Report 6650155-3 (Version None)
Quarter: 2010Q1

REPORT INFORMATION
  Report Type: 
  Country: None (occurrence: None)
  Receive Date: 20100325
  Receipt Date: 20100317
  Transmission Date: 20100710
  Serious: Yes (Hospitalization)
  Sender: FDA-Public Use
  Company Number: IT-ASTRAZENECA-2010SE02247

PATIENT
  Age: 32666 Day
  Sex: Female

DRUGS (9)
  1. TENORMIN [Suspect]
     Route: 048
     Dates: start: 20090930
  2. TENORMIN [Suspect]
     Route: 048
  3. AMLODIPINE [Concomitant]
  4. ACETYLSALICYLIC ACID [Concomitant]
  5. ATORVASTATIN CALCIUM [Concomitant]
  6. ALLOPURINOL [Concomitant]
  7. DOXAZOSIN [Concomitant]
  8. CLONIDINE [Concomitant]
  9. MONOKET [Concomitant]

REACTIONS (3)
  - DIZZINESS [None]
  - HEAD INJURY [None]
  - SINUS BRADYCARDIA [None]
